FAERS Safety Report 4592506-X (Version None)
Quarter: 2005Q1

REPORT INFORMATION
  Report Type: 
  Country: None (occurrence: None)
  Receive Date: 20050222
  Receipt Date: 20050204
  Transmission Date: 20050727
  Serious: Yes (Other)
  Sender: FDA-Public Use
  Company Number: 2004039546

PATIENT
  Age: 59 Year
  Sex: Male

DRUGS (1)
  1. VIAGRA [Suspect]
     Indication: ILL-DEFINED DISORDER

REACTIONS (5)
  - CATARACT [None]
  - CHOROIDAL INFARCTION [None]
  - OPTIC ISCHAEMIC NEUROPATHY [None]
  - OVERDOSE [None]
  - VITREOUS DETACHMENT [None]
